FAERS Safety Report 5372799-1 (Version None)
Quarter: 2007Q2

REPORT INFORMATION
  Report Type: 
  Country: None (occurrence: None)
  Receive Date: 20070620
  Receipt Date: 20060516
  Transmission Date: 20071010
  Serious: Yes (Hospitalization)
  Sender: FDA-Public Use
  Company Number: 448408

PATIENT
  Age: 59 Year
  Sex: Female
  Weight: 86.2 kg

DRUGS (12)
  1. ROFERON-A [Suspect]
     Indication: HEPATITIS C
     Dosage: SUBCUTANEOUS
     Route: 058
  2. PEGASYS [Suspect]
     Indication: HEPATITIS C
     Dosage: SUBCUTANEOUS
     Route: 058
  3. INTRON A [Suspect]
     Indication: HEPATITIS C
     Dosage: SUBCUTANEOUS
     Route: 058
     Dates: start: 19930615
  4. VIOKASE (PANCREATIN) [Concomitant]
  5. SYNTHROID [Concomitant]
  6. LASIX [Concomitant]
  7. ALDACTONE [Concomitant]
  8. NORVASC [Concomitant]
  9. COUMADIN [Concomitant]
  10. LEXAPRO [Concomitant]
  11. AMBIEN [Concomitant]
  12. EFFERVESCENT POTASSIUM (POTASSIUM NOS) [Concomitant]

REACTIONS (2)
  - HYPOTHYROIDISM [None]
  - PANCREATITIS [None]
